FAERS Safety Report 8554134 (Version 5)
Quarter: 2012Q4

REPORT INFORMATION
  Report Type: 
  Country: HU (occurrence: HU)
  Receive Date: 20120509
  Receipt Date: 20121108
  Transmission Date: 20130627
  Serious: Yes (Hospitalization, Other)
  Sender: FDA-Public Use
  Company Number: HU-ELI_LILLY_AND_COMPANY-HU201204009192

PATIENT
  Age: 69 Year
  Sex: Male

DRUGS (2)
  1. OLANZAPINE [Suspect]
     Indication: SCHIZOPHRENIA, PARANOID TYPE
     Dosage: 300 mg, every 2 weeks
     Dates: start: 201011
  2. OLANZAPINE [Suspect]
     Dosage: 405 mg, monthly (1/M)
     Route: 030

REACTIONS (4)
  - Dysarthria [Recovered/Resolved]
  - Somnolence [Recovered/Resolved]
  - Pneumonia bacterial [Unknown]
  - Blood creatine phosphokinase increased [Unknown]
